FAERS Safety Report 13612563 (Version 1)
Quarter: 2017Q2

REPORT INFORMATION
  Report Type: Spontaneous
  Country: US (occurrence: US)
  Receive Date: 20170605
  Receipt Date: 20170605
  Transmission Date: 20170830
  Serious: No
  Sender: FDA-Public Use
  Company Number: US-ELI_LILLY_AND_COMPANY-US201705004494

PATIENT
  Sex: Male

DRUGS (3)
  1. REPAGLINIDE. [Concomitant]
     Active Substance: REPAGLINIDE
     Indication: PRODUCT USED FOR UNKNOWN INDICATION
     Dosage: UNK, TID
     Route: 065
  2. BASAGLAR [Suspect]
     Active Substance: INSULIN GLARGINE
     Indication: PRODUCT USED FOR UNKNOWN INDICATION
     Dosage: 10 IU, EACH EVENING
     Route: 065
     Dates: start: 20170505, end: 20170508
  3. BASAGLAR [Suspect]
     Active Substance: INSULIN GLARGINE
     Dosage: 11 IU, EACH EVENING
     Route: 065
     Dates: start: 20170509

REACTIONS (1)
  - Blood glucose increased [Not Recovered/Not Resolved]

NARRATIVE: CASE EVENT DATE: 20170506
